FAERS Safety Report 5932442-7 (Version None)
Quarter: 2008Q4

REPORT INFORMATION
  Report Type: 
  Country: None (occurrence: None)
  Receive Date: 20081027
  Receipt Date: 20081027
  Transmission Date: 20090506
  Serious: No
  Sender: FDA-Public Use
  Company Number: None

PATIENT
  Age: 35 Year
  Sex: Male
  Weight: 90.7194 kg

DRUGS (1)
  1. PYRIDOSTIGMINE 60MG [Suspect]
     Indication: MYASTHENIA GRAVIS
     Dosage: 60MG 4 TIMES DAILY PO
     Route: 048

REACTIONS (4)
  - DRUG DOSE OMISSION [None]
  - ECONOMIC PROBLEM [None]
  - POOR QUALITY DRUG ADMINISTERED [None]
  - PRODUCT QUALITY ISSUE [None]
